FAERS Safety Report 9456320 (Version 2)
Quarter: 2013Q4

REPORT INFORMATION
  Report Type: Spontaneous
  Country: ES (occurrence: ES)
  Receive Date: 20130813
  Receipt Date: 20131002
  Transmission Date: 20140711
  Serious: Yes (Death, Hospitalization)
  Sender: FDA-Public Use
  Company Number: ES-ROCHE-1260762

PATIENT
  Age: 79 Year
  Sex: Female

DRUGS (3)
  1. ALTEPLASE [Suspect]
     Indication: PULMONARY EMBOLISM
     Route: 042
     Dates: start: 20130629
  2. HEPARIN SODIUM [Interacting]
     Indication: PULMONARY EMBOLISM
     Route: 058
     Dates: start: 20130628
  3. CLOPIDOGREL [Concomitant]
     Indication: PULMONARY EMBOLISM
     Route: 065
     Dates: start: 20130628

REACTIONS (2)
  - Cerebral haemorrhage [Fatal]
  - Drug interaction [Fatal]
